FAERS Safety Report 6340768-0 (Version None)
Quarter: 2009Q3

REPORT INFORMATION
  Report Type: 
  Country: None (occurrence: None)
  Receive Date: 20090904
  Receipt Date: 20090828
  Transmission Date: 20100115
  Serious: Yes (Other)
  Sender: FDA-Public Use
  Company Number: CH-NOVOPROD-291110

PATIENT
  Sex: Male

DRUGS (2)
  1. NOVONORM [Suspect]
     Indication: DRUG USE FOR UNKNOWN INDICATION
     Dosage: 2 MG, UNK
  2. NOVONORM [Suspect]
     Dosage: 3 MG, UNK

REACTIONS (1)
  - EPILEPSY [None]
